FAERS Safety Report 18143285 (Version 2)
Quarter: 2020Q3

REPORT INFORMATION
  Report Type: Spontaneous
  Country: US (occurrence: US)
  Receive Date: 20200812
  Receipt Date: 20200820
  Transmission Date: 20201103
  Serious: Yes (Hospitalization, Congenital Anomaly, Other)
  Sender: FDA-Public Use
  Company Number: US-GILEAD-2020-0489915

PATIENT
  Sex: Female

DRUGS (9)
  1. PROPOFOL. [Concomitant]
     Active Substance: PROPOFOL
     Route: 064
  2. HYDROXYCHLOROQUINE [Concomitant]
     Active Substance: HYDROXYCHLOROQUINE
     Route: 064
  3. BETAMETHASONE. [Concomitant]
     Active Substance: BETAMETHASONE
     Route: 064
  4. MAGNESIUM SULFATE. [Concomitant]
     Active Substance: MAGNESIUM SULFATE
     Route: 064
  5. AZITHROMYCIN ANHYDROUS. [Concomitant]
     Active Substance: AZITHROMYCIN ANHYDROUS
     Route: 064
  6. PLASMA [Concomitant]
     Active Substance: HUMAN PLASMA
     Route: 064
  7. TOCILIZUMAB. [Concomitant]
     Active Substance: TOCILIZUMAB
     Route: 064
  8. REMDESIVIR. [Suspect]
     Active Substance: REMDESIVIR
     Indication: COVID-19
     Dosage: UNK
     Route: 064
     Dates: start: 2020, end: 2020
  9. NITRIC OXIDE. [Concomitant]
     Active Substance: NITRIC OXIDE
     Route: 064

REACTIONS (5)
  - Intraventricular haemorrhage [Not Recovered/Not Resolved]
  - Foetal exposure during pregnancy [Recovered/Resolved]
  - Tuberous sclerosis complex [Not Recovered/Not Resolved]
  - Premature baby [Unknown]
  - Patent ductus arteriosus [Not Recovered/Not Resolved]

NARRATIVE: CASE EVENT DATE: 2020
